FAERS Safety Report 7428815-6 (Version None)
Quarter: 2011Q2

REPORT INFORMATION
  Report Type: 
  Country: None (occurrence: None)
  Receive Date: 20110421
  Receipt Date: 20110418
  Transmission Date: 20111010
  Serious: Yes (Hospitalization, Other)
  Sender: FDA-Public Use
  Company Number: BE-PFIZER INC-2011032857

PATIENT
  Age: 79 Year
  Sex: Female

DRUGS (3)
  1. BISOPROLOL FUMARATE [Concomitant]
     Indication: HYPERTENSION
     Dosage: 2.5 MG, 1X/DAY
     Route: 048
  2. PANTOPRAZOLE [Concomitant]
     Dosage: 20 MG, 1X/DAY
     Route: 048
  3. EFFEXOR [Suspect]
     Dosage: UNK
     Route: 048

REACTIONS (8)
  - HYPONATRAEMIA [None]
  - PALPITATIONS [None]
  - MALAISE [None]
  - HYPOKALAEMIA [None]
  - DEHYDRATION [None]
  - RENAL FAILURE [None]
  - GASTROENTERITIS [None]
  - ANXIETY [None]
